FAERS Safety Report 6066620-6 (Version None)
Quarter: 2009Q1

REPORT INFORMATION
  Report Type: 
  Country: None (occurrence: None)
  Receive Date: 20090205
  Receipt Date: 20090129
  Transmission Date: 20090719
  Serious: Yes (Other)
  Sender: FDA-Public Use
  Company Number: B0557318A

PATIENT
  Age: 58 Year
  Sex: Male

DRUGS (3)
  1. REQUIP [Suspect]
     Indication: PARKINSON'S DISEASE
     Dosage: 24MG PER DAY
     Route: 065
     Dates: start: 20081115
  2. LEVODOPA [Concomitant]
     Route: 065
     Dates: start: 20050101
  3. CARBIDOPA [Concomitant]
     Route: 065
     Dates: start: 20050101

REACTIONS (3)
  - DRUG INEFFECTIVE [None]
  - MUSCLE RIGIDITY [None]
  - PARKINSON'S DISEASE [None]
